FAERS Safety Report 10929615 (Version 1)
Quarter: 2015Q1

REPORT INFORMATION
  Report Type: Spontaneous
  Country: NL (occurrence: NL)
  Receive Date: 20150319
  Receipt Date: 20150319
  Transmission Date: 20150721
  Serious: Yes (Hospitalization)
  Sender: FDA-Public Use
  Company Number: NL-TEVA-547541ISR

PATIENT
  Age: 70 Year
  Sex: Male
  Weight: 96 kg

DRUGS (6)
  1. ALLOPURINOL TABLET 100MG [Concomitant]
     Active Substance: ALLOPURINOL
     Dosage: 1 X 100 MG
     Route: 048
  2. ETOPOSIDE INFOPL CONC 20MG/ML [Suspect]
     Active Substance: ETOPOSIDE
     Indication: NEUROENDOCRINE TUMOUR
     Dosage: 212 MG 3 TIMES EACH COURSE, RECEIVED 3 COURSES
     Route: 042
     Dates: start: 2014, end: 201403
  3. CARBOPLATINE INFUUS [Suspect]
     Active Substance: CARBOPLATIN
     Indication: NEUROENDOCRINE TUMOUR
     Dosage: 396 MG ONCE EVERY 3 WEEKS
     Route: 042
     Dates: start: 2014, end: 201403
  4. PANTOPRAZOL TABLET MSR 40MG [Concomitant]
     Active Substance: PANTOPRAZOLE SODIUM
     Dosage: 1 X 40 MG
     Route: 048
  5. LOSARTAN TABLET FO 100MG [Concomitant]
     Dosage: 1 X 100 MG
     Route: 048
  6. SIMVASTATINE TABLET 20MG [Concomitant]
     Dosage: 1 X 20 MG
     Route: 048

REACTIONS (2)
  - Phimosis [Recovered/Resolved with Sequelae]
  - Urosepsis [None]

NARRATIVE: CASE EVENT DATE: 201407
